FAERS Safety Report 6527643-3 (Version None)
Quarter: 2010Q1

REPORT INFORMATION
  Report Type: 
  Country: None (occurrence: None)
  Receive Date: 20100105
  Receipt Date: 20091221
  Transmission Date: 20100710
  Serious: Yes (Hospitalization)
  Sender: FDA-Public Use
  Company Number: PHEH2009US15733

PATIENT
  Sex: Female

DRUGS (10)
  1. FEMARA [Suspect]
     Indication: BREAST CANCER
     Dosage: DAILY
     Route: 048
     Dates: start: 20090301, end: 20091101
  2. CHLORTHALIDONE [Suspect]
  3. ASPIRIN [Suspect]
  4. CITALOPRAM HYDROBROMIDE [Concomitant]
     Indication: DEPRESSION
  5. LEVOTHYROXINE SODIUM [Concomitant]
     Indication: THYROID DISORDER
  6. ALENDRONATE SODIUM [Concomitant]
     Indication: BONE DISORDER
  7. PREDNISONE [Concomitant]
  8. AMLODIPINE [Concomitant]
     Indication: BLOOD PRESSURE INCREASED
  9. CHOLESTEROL- AND TRIGLYCERIDE REDUCERS [Concomitant]
  10. LOVASTATIN [Concomitant]
     Indication: BLOOD CHOLESTEROL INCREASED

REACTIONS (6)
  - HOT FLUSH [None]
  - IDIOPATHIC THROMBOCYTOPENIC PURPURA [None]
  - INCREASED TENDENCY TO BRUISE [None]
  - PLATELET COUNT DECREASED [None]
  - RASH [None]
  - VAGINAL DISCHARGE [None]
